FAERS Safety Report 5534809-8 (Version None)
Quarter: 2007Q4

REPORT INFORMATION
  Report Type: 
  Country: None (occurrence: None)
  Receive Date: 20071130
  Receipt Date: 20071120
  Transmission Date: 20080405
  Serious: Yes (Hospitalization)
  Sender: FDA-Public Use
  Company Number: 2007-05237

PATIENT
  Age: 52 Year
  Sex: Male

DRUGS (4)
  1. FIORINAL [Suspect]
     Indication: ANTICOAGULANT THERAPY
     Dosage: 100 MG DAILY OF ASPIRIN, ORAL
     Route: 048
  2. CLOPIDOGREL [Concomitant]
  3. STATIN THERAPY [Concomitant]
  4. BETA BLOCKING AGENTS [Concomitant]

REACTIONS (3)
  - ACUTE MYOCARDIAL INFARCTION [None]
  - CORONARY ARTERY OCCLUSION [None]
  - THROMBOSIS IN DEVICE [None]
